FAERS Safety Report 5959535-2 (Version None)
Quarter: 2008Q4

REPORT INFORMATION
  Report Type: 
  Country: None (occurrence: None)
  Receive Date: 20081120
  Receipt Date: 20081118
  Transmission Date: 20090506
  Serious: Yes (Hospitalization)
  Sender: FDA-Public Use
  Company Number: GB-WYE-G02601808

PATIENT
  Age: 67 Year

DRUGS (8)
  1. EFFEXOR [Suspect]
     Indication: SCHIZOPHRENIA
     Route: 048
  2. FERROUS GLUCONATE [Concomitant]
     Dosage: UNKNOWN
  3. RANITIDINE [Concomitant]
     Dosage: UNKNOWN
  4. ACETAMINOPHEN [Concomitant]
     Dosage: UNKNOWN
  5. PROCHLORPERAZINE [Concomitant]
     Dosage: UNKNOWN
  6. QUETIAPINE FUMARATE [Concomitant]
     Dosage: UNKNOWN
  7. CYCLIZINE [Concomitant]
     Dosage: UNKNOWN
  8. FOLIC ACID [Concomitant]
     Dosage: UNKNOWN

REACTIONS (5)
  - CONSTIPATION [None]
  - DUODENITIS [None]
  - EROSIVE DUODENITIS [None]
  - GASTROINTESTINAL HAEMORRHAGE [None]
  - HAEMATEMESIS [None]
